FAERS Safety Report 7396644-8 (Version None)
Quarter: 2011Q2

REPORT INFORMATION
  Report Type: 
  Country: None (occurrence: None)
  Receive Date: 20110406
  Receipt Date: 20110331
  Transmission Date: 20111010
  Serious: Yes (Death, Hospitalization)
  Sender: FDA-Public Use
  Company Number: PHHY2011US14351

PATIENT
  Sex: Male
  Weight: 135.62 kg

DRUGS (7)
  1. ATENOLOL [Concomitant]
  2. EXJADE [Suspect]
     Indication: MYELODYSPLASTIC SYNDROME
     Dosage: 500 MG, BID
     Route: 048
     Dates: start: 20110113
  3. PLAQUENIL [Concomitant]
  4. SULFASALAZINE [Concomitant]
  5. LASIX [Concomitant]
  6. TRIAMTERENE AND HYDROCHLOROTHIAZID [Concomitant]
  7. LOVASTATIN [Concomitant]

REACTIONS (2)
  - ACUTE MYELOID LEUKAEMIA [None]
  - DEATH [None]
